FAERS Safety Report 13899486 (Version 1)
Quarter: 2017Q3

REPORT INFORMATION
  Report Type: Spontaneous
  Country: US (occurrence: US)
  Receive Date: 20170823
  Receipt Date: 20170823
  Transmission Date: 20171127
  Serious: Yes (Other)
  Sender: FDA-Public Use
  Company Number: None

PATIENT
  Age: 24 Year
  Sex: Female
  Weight: 45.9 kg

DRUGS (5)
  1. MIBELAS 24 FE [Suspect]
     Active Substance: ETHINYL ESTRADIOL\NORETHINDRONE ACETATE
     Indication: ACNE
     Dosage: AT BEDTIME
     Route: 048
     Dates: start: 20170430, end: 20170823
  2. SPIRONOLACTONE. [Concomitant]
     Active Substance: SPIRONOLACTONE
  3. MIBELAS 24 FE [Suspect]
     Active Substance: ETHINYL ESTRADIOL\NORETHINDRONE ACETATE
     Indication: CONTRACEPTION
     Dosage: AT BEDTIME
     Route: 048
     Dates: start: 20170430, end: 20170823
  4. MIBELAS 24 FE [Suspect]
     Active Substance: ETHINYL ESTRADIOL\NORETHINDRONE ACETATE
     Indication: PROPHYLAXIS
     Dosage: AT BEDTIME
     Route: 048
     Dates: start: 20170430, end: 20170823
  5. MINASTRIN 24 FE [Concomitant]
     Active Substance: ETHINYL ESTRADIOL\NORETHINDRONE ACETATE

REACTIONS (7)
  - Drug ineffective [None]
  - Abdominal distension [None]
  - Product substitution issue [None]
  - Vaginal haemorrhage [None]
  - Weight increased [None]
  - Haemorrhage [None]
  - Acne [None]

NARRATIVE: CASE EVENT DATE: 20170730
